FAERS Safety Report 8326010-X (Version None)
Quarter: 2012Q2

REPORT INFORMATION
  Report Type: 
  Country: None (occurrence: None)
  Receive Date: 20120501
  Receipt Date: 20100525
  Transmission Date: 20120825
  Serious: No
  Sender: FDA-Public Use
  Company Number: US-TEVA-2010002913

PATIENT
  Sex: Female
  Weight: 163.44 kg

DRUGS (15)
  1. NUVIGIL [Suspect]
     Indication: SLEEP APNOEA SYNDROME
     Dosage: 250 MILLIGRAM;
     Route: 048
     Dates: start: 20090101
  2. TOPROL-XL [Concomitant]
     Indication: HYPERTENSION
     Dosage: 50 MILLIGRAM;
     Dates: start: 20090101
  3. GABAPENTIN [Concomitant]
     Indication: NEUROPATHY PERIPHERAL
     Dates: start: 20070101
  4. LORCET-HD [Concomitant]
     Indication: PAIN
     Dosage: 40 MILLIGRAM;
     Dates: start: 20020101
  5. ED-A-HIST [Concomitant]
     Indication: SINUS DISORDER
     Dates: start: 20070101
  6. ASPIRIN [Concomitant]
     Dates: start: 20090101
  7. INVEGA [Concomitant]
     Indication: BIPOLAR I DISORDER
     Dosage: 6 MILLIGRAM;
     Dates: start: 20050101, end: 20100201
  8. NUVIGIL [Suspect]
     Dosage: 500 MILLIGRAM;
     Route: 048
  9. MOBIC [Concomitant]
     Indication: ARTHRITIS
     Dates: start: 20090101
  10. MOBIC [Concomitant]
     Dosage: 15 MILLIGRAM;
  11. B12/FISH OIL/ [Concomitant]
  12. XANAX [Concomitant]
     Indication: ANXIETY
     Dates: start: 19900101
  13. LISINOPRIL [Concomitant]
     Indication: HYPERTENSION
     Dosage: 40 MILLIGRAM;
     Dates: start: 20080101
  14. CYMBALTA [Concomitant]
     Indication: BIPOLAR I DISORDER
     Dosage: 90 MILLIGRAM;
     Dates: start: 20050101
  15. GLUCOVANCE [Concomitant]
     Indication: DIABETES MELLITUS
     Dosage: 22 MILLIGRAM;
     Dates: start: 20050101

REACTIONS (3)
  - OROPHARYNGEAL PAIN [None]
  - PALPITATIONS [None]
  - ANXIETY [None]
